FAERS Safety Report 5871140-5 (Version None)
Quarter: 2008Q3

REPORT INFORMATION
  Report Type: 
  Country: None (occurrence: None)
  Receive Date: 20080904
  Receipt Date: 20080823
  Transmission Date: 20090109
  Serious: Yes (Other)
  Sender: FDA-Public Use
  Company Number: US-PFIZER INC-2008072101

PATIENT
  Sex: Male
  Weight: 91 kg

DRUGS (3)
  1. CHANTIX [Suspect]
     Indication: SMOKING CESSATION THERAPY
     Route: 048
  2. HERBAL PREPARATION [Concomitant]
  3. HERBAL NOS/VITAMINS NOS [Concomitant]

REACTIONS (1)
  - RECTAL HAEMORRHAGE [None]
